FAERS Safety Report 5137375-4 (Version None)
Quarter: 2006Q4

REPORT INFORMATION
  Report Type: 
  Country: None (occurrence: None)
  Receive Date: 20061030
  Receipt Date: 20051021
  Transmission Date: 20070319
  Serious: No
  Sender: FDA-Public Use
  Company Number: US-GLAXOSMITHKLINE-A0579070A

PATIENT
  Age: 80 Year
  Sex: Female
  Weight: 60.9 kg

DRUGS (5)
  1. ADVAIR HFA [Suspect]
     Indication: ASTHMA
     Route: 055
     Dates: end: 20051116
  2. PLAVIX [Concomitant]
  3. ZOLOFT [Concomitant]
  4. HYZAAR [Concomitant]
  5. LIPITOR [Concomitant]

REACTIONS (3)
  - DYSPHAGIA [None]
  - DYSPHONIA [None]
  - TREMOR [None]
